FAERS Safety Report 4970714-3 (Version None)
Quarter: 2006Q1

REPORT INFORMATION
  Report Type: 
  Country: None (occurrence: None)
  Receive Date: 20060207
  Receipt Date: 20050826
  Transmission Date: 20060701
  Serious: Yes (Hospitalization, Other)
  Sender: FDA-Public Use
  Company Number: USA050597878

PATIENT
  Age: 80 Year
  Sex: Female

DRUGS (3)
  1. EVISTA [Suspect]
     Indication: OSTEOPOROSIS
     Dates: start: 20041201, end: 20050501
  2. VICODIN [Concomitant]
  3. CARDIZEM /00489701/ (DILTIAZEM /00489701/) [Concomitant]

REACTIONS (1)
  - THROMBOSIS [None]
